FAERS Safety Report 4549536-3 (Version None)
Quarter: 2005Q1

REPORT INFORMATION
  Report Type: 
  Country: None (occurrence: None)
  Receive Date: 20050111
  Receipt Date: 20041223
  Transmission Date: 20050727
  Serious: Yes (Life-Threatening, Hospitalization)
  Sender: FDA-Public Use
  Company Number: US-ROCHE-390682

PATIENT
  Age: 59 Year
  Sex: Female

DRUGS (1)
  1. LARIAM [Suspect]
     Route: 065
     Dates: start: 20040615, end: 20040615

REACTIONS (7)
  - ANXIETY [None]
  - ATRIAL FIBRILLATION [None]
  - FLUID RETENTION [None]
  - HEART RATE INCREASED [None]
  - HYPERHIDROSIS [None]
  - PALPITATIONS [None]
  - PANIC ATTACK [None]
